FAERS Safety Report 14415378 (Version 1)
Quarter: 2018Q1

REPORT INFORMATION
  Report Type: Report from Study
  Country: MX (occurrence: MX)
  Receive Date: 20180121
  Receipt Date: 20180121
  Transmission Date: 20180509
  Serious: Yes (Other)
  Sender: FDA-Public Use
  Company Number: PHHY2016MX141718

PATIENT
  Age: 23 Year
  Sex: Male
  Weight: 69 kg

DRUGS (10)
  1. TRILEPTAL [Suspect]
     Active Substance: OXCARBAZEPINE
     Indication: DIZZINESS
  2. TRILEPTAL [Suspect]
     Active Substance: OXCARBAZEPINE
     Indication: BRAIN INJURY
     Dosage: 1 DF (300 MG), QD (APPROXIMATELY 6 YEARS AGO)
     Route: 048
  3. CARBAMAZEPINE. [Suspect]
     Active Substance: CARBAMAZEPINE
     Indication: EPILEPSY
     Dosage: 2 DF, BID (1 IN MORNING, 1 AT NIGHT)
     Route: 048
  4. CLONAZEPAM. [Concomitant]
     Active Substance: CLONAZEPAM
     Indication: SEIZURE
     Dosage: 1 DF, QHS SINCE 6 YEARS AGO
     Route: 048
  5. CARBAMAZEPINE. [Concomitant]
     Active Substance: CARBAMAZEPINE
     Indication: SEIZURE
     Dosage: (SINCE 4 YERARS) AND (STOPPED ON SINCE 2 YEARS)
     Route: 048
  6. CLONAZEPAM. [Concomitant]
     Active Substance: CLONAZEPAM
     Indication: EPILEPSY
  7. OXCARBAZEPINE. [Concomitant]
     Active Substance: OXCARBAZEPINE
     Indication: EPILEPSY
     Dosage: 1 DF, QD SINCE 6 YEARS AGO TO TIME AGO
     Route: 048
  8. TRILEPTAL [Suspect]
     Active Substance: OXCARBAZEPINE
     Indication: EPILEPSY
     Dosage: 2 DF (300 MG), QD (MORNING) (14 YEARS AGO)
     Route: 048
  9. CLONAZEPAM. [Concomitant]
     Active Substance: CLONAZEPAM
     Indication: NERVOUS SYSTEM DISORDER
     Dosage: 1 DF, QD
     Route: 048
  10. VALPROATE SODIUM. [Concomitant]
     Active Substance: VALPROATE SODIUM
     Indication: PRODUCT USED FOR UNKNOWN INDICATION
     Route: 065

REACTIONS (44)
  - Muscle rigidity [Recovered/Resolved]
  - Dizziness [Not Recovered/Not Resolved]
  - Hallucination, auditory [Unknown]
  - Ocular hyperaemia [Unknown]
  - Self esteem decreased [Unknown]
  - Muscle spasms [Recovered/Resolved]
  - Pain in extremity [Unknown]
  - Memory impairment [Recovered/Resolved]
  - Dizziness [Recovered/Resolved]
  - Product use in unapproved indication [Not Recovered/Not Resolved]
  - Musculoskeletal stiffness [Recovered/Resolved]
  - Pain [Not Recovered/Not Resolved]
  - Anxiety [Unknown]
  - Nervousness [Unknown]
  - Stress [Unknown]
  - Depression [Recovering/Resolving]
  - Epilepsy [Recovered/Resolved]
  - Tremor [Recovered/Resolved]
  - Blepharospasm [Recovered/Resolved]
  - Hyperhidrosis [Recovered/Resolved]
  - Pain in extremity [Recovered/Resolved]
  - Antisocial behaviour [Unknown]
  - Social fear [Unknown]
  - Dyskinesia [Unknown]
  - Drug ineffective [Unknown]
  - Epilepsy [Recovered/Resolved]
  - Malaise [Unknown]
  - Thirst [Not Recovered/Not Resolved]
  - Decreased appetite [Unknown]
  - Fear [Unknown]
  - Speech disorder [Unknown]
  - Blood cholesterol increased [Not Recovered/Not Resolved]
  - Memory impairment [Recovered/Resolved]
  - Epilepsy [Not Recovered/Not Resolved]
  - Depression [Recovered/Resolved]
  - Feeling abnormal [Recovered/Resolved]
  - Epilepsy [Recovered/Resolved]
  - Glossodynia [Unknown]
  - Eye pain [Unknown]
  - Ocular discomfort [Unknown]
  - Somnolence [Recovered/Resolved]
  - Depressed mood [Unknown]
  - Anger [Recovered/Resolved]
  - Memory impairment [Unknown]

NARRATIVE: CASE EVENT DATE: 201505
